FAERS Safety Report 14542529 (Version 1)
Quarter: 2018Q1

REPORT INFORMATION
  Report Type: Spontaneous
  Country: US (occurrence: US)
  Receive Date: 20180216
  Receipt Date: 20180216
  Transmission Date: 20180509
  Serious: Yes (Death, Life-Threatening, Hospitalization)
  Sender: FDA-Public Use
  Company Number: None

PATIENT
  Age: 41 Year
  Sex: Male
  Weight: 86.18 kg

DRUGS (1)
  1. OXCARBAZEPINE 300MG TAB [Suspect]
     Active Substance: OXCARBAZEPINE
     Indication: SCHIZOAFFECTIVE DISORDER
     Dosage: 300MG PO QAM + 600 MG PO QHS
     Route: 048
     Dates: start: 20171204

REACTIONS (2)
  - Inappropriate antidiuretic hormone secretion [None]
  - Hyponatraemia [None]

NARRATIVE: CASE EVENT DATE: 20170512
